FAERS Safety Report 13820952 (Version 1)
Quarter: 2017Q3

REPORT INFORMATION
  Report Type: Spontaneous
  Country: RO (occurrence: RO)
  Receive Date: 20170801
  Receipt Date: 20170801
  Transmission Date: 20171127
  Serious: Yes (Hospitalization)
  Sender: FDA-Public Use
  Company Number: RO-PFIZER INC-2017330965

PATIENT
  Age: 53 Year
  Sex: Male
  Weight: 65 kg

DRUGS (6)
  1. ASPIRIN CARDIO [Concomitant]
     Active Substance: ASPIRIN
     Dosage: UNK UNK, 1X/DAY, MIDDAY
  2. ATORIS [Concomitant]
     Active Substance: ATORVASTATIN CALCIUM
     Dosage: 20 MG, 1X/DAY, EVENING
  3. DHC [Concomitant]
     Active Substance: DIHYDROCODEINE BITARTRATE
     Dosage: UNK UNK, 1X/DAY, AS NEEDED
  4. SUTENT [Suspect]
     Active Substance: SUNITINIB MALATE
     Indication: METASTATIC RENAL CELL CARCINOMA
     Dosage: 50 MG, UNK
     Dates: end: 20170721
  5. LIPANTHYL [Concomitant]
     Active Substance: FENOFIBRATE
     Dosage: UNK, 1X/DAY, EVENING
  6. PLAVIX [Concomitant]
     Active Substance: CLOPIDOGREL BISULFATE
     Dosage: UNK UNK, 1X/DAY, EVENING

REACTIONS (2)
  - Neoplasm progression [Recovered/Resolved]
  - Pleurisy [Recovered/Resolved]

NARRATIVE: CASE EVENT DATE: 20170516
